FAERS Safety Report 20834906 (Version 2)
Quarter: 2022Q2

REPORT INFORMATION
  Report Type: Report from Study
  Country: GB (occurrence: GB)
  Receive Date: 20220516
  Receipt Date: 20220615
  Transmission Date: 20220721
  Serious: Yes (Life-Threatening, Other)
  Sender: FDA-Public Use
  Company Number: GB-IPSEN Group, Research and Development-2022-00797

PATIENT
  Age: 76 Year
  Sex: Male

DRUGS (2)
  1. EVEROLIMUS [Suspect]
     Active Substance: EVEROLIMUS
     Indication: Product used for unknown indication
     Dosage: UNK, DOSE NOT REPORTED
  2. LANREOTIDE ACETATE [Suspect]
     Active Substance: LANREOTIDE ACETATE
     Indication: Neuroendocrine tumour
     Dosage: 120 MILLIGRAM, Q21D, 120MG/0.5ML
     Route: 058

REACTIONS (7)
  - Anaphylactic reaction [Unknown]
  - Mouth ulceration [Unknown]
  - Diarrhoea [Unknown]
  - Oedema peripheral [Unknown]
  - Fatigue [Unknown]
  - Seasonal allergy [Unknown]
  - Off label use [Unknown]
